FAERS Safety Report 20647504 (Version 1)
Quarter: 2022Q1

REPORT INFORMATION
  Report Type: Spontaneous
  Country: US (occurrence: US)
  Receive Date: 20220329
  Receipt Date: 20220329
  Transmission Date: 20220423
  Serious: Yes (Death, Life-Threatening, Other)
  Sender: FDA-Public Use
  Company Number: US-BRACCO-2022US00903

PATIENT
  Age: 58 Year
  Sex: Male

DRUGS (2)
  1. ISOVUE 370 [Suspect]
     Active Substance: IOPAMIDOL
     Indication: Computerised tomogram
     Dosage: 100 ML, SINGLE, 3ML/SEC
     Route: 042
     Dates: start: 20220309, end: 20220309
  2. SODIUM CHLORIDE [Concomitant]
     Active Substance: SODIUM CHLORIDE

REACTIONS (4)
  - Dyspnoea [Fatal]
  - Wheezing [Fatal]
  - Hypersensitivity [Fatal]
  - Respiratory distress [Fatal]

NARRATIVE: CASE EVENT DATE: 20220309
